FAERS Safety Report 10050549 (Version 1)
Quarter: 2014Q2

REPORT INFORMATION
  Report Type: Spontaneous
  Country: US (occurrence: US)
  Receive Date: 20140401
  Receipt Date: 20140401
  Transmission Date: 20141212
  Serious: No
  Sender: FDA-Public Use
  Company Number: US-ASTRAZENECA-2014SE00196

PATIENT
  Sex: Male

DRUGS (8)
  1. NEXIUM [Suspect]
     Indication: GASTROOESOPHAGEAL REFLUX DISEASE
     Route: 048
  2. NEXIUM [Suspect]
     Indication: BARRETT^S OESOPHAGUS
     Route: 048
  3. NEXIUM [Suspect]
     Indication: GASTROOESOPHAGEAL REFLUX DISEASE
     Dosage: GENERIC
     Route: 065
     Dates: start: 201307
  4. NEXIUM [Suspect]
     Indication: BARRETT^S OESOPHAGUS
     Dosage: GENERIC
     Route: 065
     Dates: start: 201307
  5. NEXIUM [Suspect]
     Indication: GASTROOESOPHAGEAL REFLUX DISEASE
     Dosage: NEKSIUM FROM CANADA
     Route: 065
  6. NEXIUM [Suspect]
     Indication: BARRETT^S OESOPHAGUS
     Dosage: NEKSIUM FROM CANADA
     Route: 065
  7. NEXIUM [Suspect]
     Indication: GASTROOESOPHAGEAL REFLUX DISEASE
     Dosage: MADE IN NEPAL
     Route: 065
  8. NEXIUM [Suspect]
     Indication: BARRETT^S OESOPHAGUS
     Dosage: MADE IN NEPAL
     Route: 065

REACTIONS (5)
  - Burning sensation [Not Recovered/Not Resolved]
  - Oesophageal ulcer [Unknown]
  - Sleep disorder due to a general medical condition [Unknown]
  - Off label use [Unknown]
  - Off label use [Unknown]
